FAERS Safety Report 9831497 (Version 1)
Quarter: 2014Q1

REPORT INFORMATION
  Report Type: Spontaneous
  Country: AU (occurrence: AU)
  Receive Date: 20140121
  Receipt Date: 20140121
  Transmission Date: 20141002
  Serious: No
  Sender: FDA-Public Use
  Company Number: AU-JNJFOC-20110609173

PATIENT
  Sex: Female

DRUGS (2)
  1. DUROGESIC [Suspect]
     Indication: BACK PAIN
     Route: 062
  2. DUROGESIC [Suspect]
     Indication: BACK PAIN
     Route: 062

REACTIONS (4)
  - Inadequate analgesia [Unknown]
  - Hyperhidrosis [Unknown]
  - Wrong technique in drug usage process [Unknown]
  - Product adhesion issue [Unknown]
